FAERS Safety Report 4384943-3 (Version None)
Quarter: 2004Q2

REPORT INFORMATION
  Report Type: 
  Country: None (occurrence: None)
  Receive Date: 20040625
  Receipt Date: 20040617
  Transmission Date: 20050107
  Serious: Yes (Hospitalization)
  Sender: FDA-Public Use
  Company Number: SE-ROCHE-371350

PATIENT
  Age: 61 Year
  Sex: Male

DRUGS (10)
  1. PEGASYS [Suspect]
     Indication: HEPATITIS C
     Route: 065
     Dates: start: 20030317, end: 20040228
  2. SELOKEN ZOC [Concomitant]
  3. STOCRIN [Concomitant]
  4. INSULATARD NPH HUMAN [Concomitant]
  5. FUROSEMIDE [Concomitant]
  6. EPIVIR [Concomitant]
  7. ZERIT [Concomitant]
  8. NOVONORM [Concomitant]
  9. AGENERASE [Concomitant]
  10. NORVIR [Concomitant]

REACTIONS (9)
  - ATRIAL FIBRILLATION [None]
  - CARDIAC FAILURE [None]
  - CHEST DISCOMFORT [None]
  - CHEST PAIN [None]
  - COUGH [None]
  - DYSPNOEA [None]
  - PERICARDITIS [None]
  - PYREXIA [None]
  - RALES [None]
